FAERS Safety Report 7379898-3 (Version None)
Quarter: 2011Q1

REPORT INFORMATION
  Report Type: 
  Country: None (occurrence: None)
  Receive Date: 20110318
  Receipt Date: 20110311
  Transmission Date: 20110831
  Serious: Yes (Death)
  Sender: FDA-Public Use
  Company Number: 1000019203

PATIENT
  Age: 75 Year
  Sex: Female
  Weight: 70 kg

DRUGS (13)
  1. GODAMED (ACETYLSALICYLIC ACID) (ACETYLSALICYLIC ACID) [Concomitant]
  2. SYMBICORT (BUDESONIDE, FORMOTEROL FUMARATE) (BUDESONIDE, FORMOTEROL FU [Concomitant]
  3. ROFLUMILAST (ROFLUMILAST) (500 MICROGRAM, TABLETS) [Suspect]
     Indication: CHRONIC OBSTRUCTIVE PULMONARY DISEASE
     Dosage: 1 DOSAGE FORM (1 DOSAGE FORMS,1 IN 1 D)
  4. PANTOPRAZOL (PANTOPRAZOLE SODIUM) (PANTOPRAZOLE SODIUM) [Concomitant]
  5. NOVAMINSULFON (METAMIZOLE SODIUM) (DROPS) (METAMIZOLE SODIUM) [Concomitant]
  6. THIAMAZOL (THIAMAZOLE) (5 MILLIGRAM) (THIAMAZOLE) [Concomitant]
  7. TILDEN RET (TILIDINE) (TILIDINE) [Concomitant]
  8. PREDNISONE (PREDNISOLONE) (PREDNISOLONE) [Concomitant]
  9. BERODUAL A (IPRATROPIUM, FENOTEROL) (IPRATROPIUM, FENOTEROL) [Concomitant]
  10. CALCIUM BRAUSE D3 (CALCIUM CARBONATE, CHOLECALCIFEROL) (CALCIUM CARBON [Concomitant]
  11. CORVO (ENALAPRIL MALEATE) (ENALAPRIL MALEATE) [Concomitant]
  12. XIPAMID (HYDROCHLOROTHIAZIDE) (HYDROCHLOROTHIAZIDE) [Concomitant]
  13. KALINOR (POTASSIUM CHLORIDE) (POTASSIUM CHLORIDE) [Concomitant]

REACTIONS (4)
  - MUSCULOSKELETAL STIFFNESS [None]
  - ARTHRALGIA [None]
  - JOINT SWELLING [None]
  - MUSCULOSKELETAL PAIN [None]
